FAERS Safety Report 5057317-X (Version None)
Quarter: 2006Q2

REPORT INFORMATION
  Report Type: 
  Country: None (occurrence: None)
  Receive Date: 20060622
  Receipt Date: 20050929
  Transmission Date: 20061013
  Serious: Yes (Death)
  Sender: FDA-Public Use
  Company Number: US-JNJFOC-20051000507

PATIENT
  Age: 50 Year
  Sex: Female

DRUGS (1)
  1. DURAGESIC-100 [Suspect]
     Indication: PAIN
     Dosage: 125 UG/HR, TRANSDERMAL
     Route: 062
     Dates: end: 20050629

REACTIONS (1)
  - OVERDOSE [None]
